FAERS Safety Report 20015516 (Version 1)
Quarter: 2021Q4

REPORT INFORMATION
  Report Type: Spontaneous
  Country: US (occurrence: None)
  Receive Date: 20211029
  Receipt Date: 20211029
  Transmission Date: 20220303
  Serious: Yes (Hospitalization)
  Sender: FDA-Public Use
  Company Number: None

PATIENT
  Sex: Male
  Weight: 123 kg

DRUGS (6)
  1. TAXOTERE [Suspect]
     Active Substance: DOCETAXEL
     Dates: end: 20211005
  2. CASODEX [Suspect]
     Active Substance: BICALUTAMIDE
     Indication: Product used for unknown indication
     Dates: end: 20211014
  3. LEUPROLIDE ACETATE [Suspect]
     Active Substance: LEUPROLIDE ACETATE
     Indication: Product used for unknown indication
     Dates: end: 20210611
  4. LEVAQUIN [Concomitant]
     Active Substance: LEVOFLOXACIN
  5. RETACRIT [Concomitant]
     Active Substance: EPOETIN ALFA-EPBX
  6. ZARXIO [Concomitant]
     Active Substance: FILGRASTIM-SNDZ

REACTIONS (8)
  - Asthenia [None]
  - Neutrophil count decreased [None]
  - Infection [None]
  - Erythema [None]
  - Proctalgia [None]
  - Diarrhoea haemorrhagic [None]
  - Rectal fissure [None]
  - Large intestine infection [None]

NARRATIVE: CASE EVENT DATE: 20211019
